FAERS Safety Report 11388133 (Version 1)
Quarter: 2015Q3

REPORT INFORMATION
  Report Type: Spontaneous
  Country: US (occurrence: US)
  Receive Date: 20150817
  Receipt Date: 20150817
  Transmission Date: 20151125
  Serious: No
  Sender: FDA-Public Use
  Company Number: US-B.I. PHARMACEUTICALS,INC./RIDGEFIELD-2015-BI-42266BP

PATIENT
  Age: 77 Year
  Sex: Female

DRUGS (4)
  1. SPIRIVA [Suspect]
     Active Substance: TIOTROPIUM BROMIDE MONOHYDRATE
     Indication: BRONCHIECTASIS
     Dosage: 5 MG
     Route: 055
     Dates: start: 20150706
  2. PROAIR HFA [Concomitant]
     Active Substance: ALBUTEROL SULFATE
     Indication: BRONCHIECTASIS
     Dosage: 4 ANZ
     Route: 055
  3. RESTATSIS [Concomitant]
     Indication: MACULAR HOLE
  4. RESTATSIS [Concomitant]
     Indication: DRY EYE
     Route: 061

REACTIONS (2)
  - Off label use [Not Recovered/Not Resolved]
  - Cough [Not Recovered/Not Resolved]

NARRATIVE: CASE EVENT DATE: 201507
